FAERS Safety Report 7929986-5 (Version None)
Quarter: 2011Q4

REPORT INFORMATION
  Report Type: 
  Country: None (occurrence: None)
  Receive Date: 20111117
  Receipt Date: 20111109
  Transmission Date: 20120403
  Serious: Yes (Hospitalization)
  Sender: FDA-Public Use
  Company Number: ACO_23192_2011

PATIENT
  Age: 39 Year
  Sex: Female
  Weight: 72.6 kg

DRUGS (9)
  1. CYMBALTA [Concomitant]
  2. ASCORBIC ACID [Concomitant]
  3. TYSABRI [Concomitant]
  4. FISH OIL (FISH OIL) [Concomitant]
  5. AMPYRA [Suspect]
     Indication: MULTIPLE SCLEROSIS
     Dates: start: 20101203, end: 20110301
  6. AMPYRA [Suspect]
     Indication: MUSCULAR WEAKNESS
     Dates: start: 20101203, end: 20110301
  7. AMPYRA [Suspect]
     Indication: GAIT DISTURBANCE
     Dates: start: 20101203, end: 20110301
  8. MAGNESIUM (MAGNESIUM) [Concomitant]
  9. CALCIUM + VITAMIN D (CALCIUM CARBONATE, COLECALCIFEROL) [Concomitant]

REACTIONS (16)
  - FALL [None]
  - PARADOXICAL DRUG REACTION [None]
  - PNEUMONIA [None]
  - HYPOTHERMIA [None]
  - HAEMATOCHEZIA [None]
  - HEAD INJURY [None]
  - GAIT DISTURBANCE [None]
  - MULTIPLE SCLEROSIS RELAPSE [None]
  - CONSTIPATION [None]
  - PAINFUL DEFAECATION [None]
  - REFUSAL OF TREATMENT BY PATIENT [None]
  - WEIGHT DECREASED [None]
  - BALANCE DISORDER [None]
  - DECREASED APPETITE [None]
  - VISION BLURRED [None]
  - NAUSEA [None]
